FAERS Safety Report 18794461 (Version 1)
Quarter: 2021Q1

REPORT INFORMATION
  Report Type: Spontaneous
  Country: None (occurrence: US)
  Receive Date: 20210127
  Receipt Date: 20210127
  Transmission Date: 20210419
  Serious: Yes (Hospitalization, Other)
  Sender: FDA-Public Use
  Company Number: US-ELI_LILLY_AND_COMPANY-US202101007766

PATIENT
  Age: 53 Year
  Sex: Male
  Weight: 58.73 kg

DRUGS (7)
  1. HUMAN INSULIN (RDNA ORIGIN) [Suspect]
     Active Substance: INSULIN HUMAN
     Dosage: {100 INTERNATIONAL UNIT
     Route: 065
  2. GLYBURIDE. [Concomitant]
     Active Substance: GLYBURIDE
     Indication: PRODUCT USED FOR UNKNOWN INDICATION
     Dosage: 20 MG, DAILY
     Route: 065
  3. HUMAN INSULIN (RDNA ORIGIN) [Suspect]
     Active Substance: INSULIN HUMAN
     Indication: PRODUCT USED FOR UNKNOWN INDICATION
     Dosage: UNK UNK, UNKNOWN
     Route: 058
     Dates: start: 198608
  4. HUMAN INSULIN (RDNA ORIGIN) [Suspect]
     Active Substance: INSULIN HUMAN
     Dosage: 5 U/HR
     Route: 042
  5. HUMAN INSULIN (RDNA ORIGIN) [Suspect]
     Active Substance: INSULIN HUMAN
     Dosage: }200 INTERNATIONAL UNIT, DAILY
     Route: 065
  6. BENADRYL [Concomitant]
     Active Substance: DIPHENHYDRAMINE HYDROCHLORIDE
     Dosage: 50 MG, DAILY
     Route: 065
  7. DEXAMETHASONE. [Concomitant]
     Active Substance: DEXAMETHASONE
     Dosage: UNK, UNKNOWN
     Route: 065

REACTIONS (5)
  - Insulin resistance [Recovered/Resolved]
  - Hypoglycaemia [Recovered/Resolved]
  - Lethargy [Recovered/Resolved]
  - Parotid gland enlargement [Unknown]
  - Drug hypersensitivity [Recovered/Resolved]
